FAERS Safety Report 7449103-8 (Version None)
Quarter: 2011Q2

REPORT INFORMATION
  Report Type: 
  Country: None (occurrence: None)
  Receive Date: 20110502
  Receipt Date: 20110217
  Transmission Date: 20111010
  Serious: Yes (Other)
  Sender: FDA-Public Use
  Company Number: US-BAYER-2011-036016

PATIENT
  Age: 55 Year
  Sex: Female

DRUGS (1)
  1. ASPIRIN [Suspect]

REACTIONS (3)
  - DRUG HYPERSENSITIVITY [None]
  - OBSTRUCTIVE AIRWAYS DISORDER [None]
  - DYSPNOEA [None]
